FAERS Safety Report 5049685-X (Version None)
Quarter: 2006Q3

REPORT INFORMATION
  Report Type: 
  Country: None (occurrence: None)
  Receive Date: 20060707
  Receipt Date: 20060626
  Transmission Date: 20061208
  Serious: Yes (Hospitalization)
  Sender: FDA-Public Use
  Company Number: 145057USA

PATIENT
  Age: 48 Year
  Sex: Female

DRUGS (3)
  1. COPAXONE [Suspect]
     Indication: MULTIPLE SCLEROSIS
  2. WELLBUTRIN [Concomitant]
  3. KLONOPIN [Concomitant]

REACTIONS (4)
  - ABDOMINAL DISTENSION [None]
  - BURSA DISORDER [None]
  - FIBROSIS [None]
  - INJECTION SITE ATROPHY [None]
